FAERS Safety Report 8534755 (Version 3)
Quarter: 2013Q1

REPORT INFORMATION
  Report Type: Spontaneous
  Country: TR (occurrence: TR)
  Receive Date: 20120427
  Receipt Date: 20130207
  Transmission Date: 20140127
  Serious: Yes (Hospitalization, Other)
  Sender: FDA-Public Use
  Company Number: TR-AMGEN-TURSP2012025562

PATIENT
  Age: 49 Year
  Sex: Female

DRUGS (4)
  1. ENBREL [Suspect]
     Indication: RHEUMATOID ARTHRITIS
     Dosage: 50 MG WEEKLY
     Route: 058
     Dates: start: 20111110, end: 20120315
  2. ENBREL [Suspect]
     Dosage: 50 MG WEEKLY
     Route: 058
     Dates: start: 20120430
  3. ENDOL                              /00003801/ [Concomitant]
     Indication: RHEUMATOID ARTHRITIS
     Dosage: TABLET 1X/DAY
     Route: 048
     Dates: start: 2006
  4. METHOTREXATE SODIUM [Concomitant]
     Indication: RHEUMATOID ARTHRITIS
     Dosage: UNK UNK, 1X4/WEEKLY
     Dates: start: 2006

REACTIONS (5)
  - Ovarian cyst [Recovered/Resolved]
  - Cough [Not Recovered/Not Resolved]
  - Scan abnormal [Not Recovered/Not Resolved]
  - Urinary tract infection [Not Recovered/Not Resolved]
  - Influenza [Not Recovered/Not Resolved]
